FAERS Safety Report 11167753 (Version 1)
Quarter: 2015Q2

REPORT INFORMATION
  Report Type: Spontaneous
  Country: US (occurrence: None)
  Receive Date: 20150604
  Receipt Date: 20150604
  Transmission Date: 20150821
  Serious: Yes (Hospitalization)
  Sender: FDA-Public Use
  Company Number: None

PATIENT
  Age: 65 Year
  Sex: Female
  Weight: 92 kg

DRUGS (1)
  1. ORITAVANCIN 1200MG [Suspect]
     Active Substance: ORITAVANCIN
     Indication: CYSTITIS
     Dosage: 1 DOSE
     Route: 042

REACTIONS (6)
  - Erythema [None]
  - Off label use [None]
  - Mechanical urticaria [None]
  - Tachycardia [None]
  - Tachypnoea [None]
  - Chills [None]

NARRATIVE: CASE EVENT DATE: 20150416
